FAERS Safety Report 8562999 (Version 2)
Quarter: 2013Q1

REPORT INFORMATION
  Report Type: Spontaneous
  Country: US (occurrence: US)
  Receive Date: 20120515
  Receipt Date: 20130111
  Transmission Date: 20140127
  Serious: Yes (Hospitalization)
  Sender: FDA-Public Use
  Company Number: US-BAYER-2012-046785

PATIENT
  Age: 26 Year
  Sex: Female
  Weight: 52 kg

DRUGS (10)
  1. YASMIN [Suspect]
     Indication: CONTRACEPTION
     Dosage: UNK
     Dates: start: 20060413, end: 20080309
  2. YASMIN [Suspect]
     Indication: ACNE
     Dosage: UNK
     Dates: start: 20080408, end: 20080813
  3. YAZ [Suspect]
     Indication: CONTRACEPTION
     Dosage: UNK
     Dates: start: 20080310, end: 20080407
  4. YAZ [Suspect]
     Indication: ACNE
  5. OCELLA [Suspect]
     Indication: ACNE
     Dosage: UNK
     Dates: start: 20080814, end: 20100226
  6. OCELLA [Suspect]
     Indication: CONTRACEPTION
  7. DILAUDID [Concomitant]
     Indication: PAIN
  8. PHENERGAN [Concomitant]
     Indication: NAUSEA
  9. ANCEF [Concomitant]
  10. ALIMENTARY TRACT AND METABOLISM [Concomitant]

REACTIONS (12)
  - Cholecystitis chronic [None]
  - Pain [None]
  - Injury [None]
  - General physical health deterioration [None]
  - Emotional distress [None]
  - Anxiety [None]
  - Vomiting [None]
  - Abdominal pain [None]
  - Dyspepsia [None]
  - Nausea [None]
  - Discomfort [None]
  - Irritability [None]
